FAERS Safety Report 7042588-0 (Version None)
Quarter: 2010Q4

REPORT INFORMATION
  Report Type: 
  Country: None (occurrence: None)
  Receive Date: 20101013
  Receipt Date: 20100820
  Transmission Date: 20110411
  Serious: Yes (Hospitalization)
  Sender: FDA-Public Use
  Company Number: US-GILEAD-2010-0030518

PATIENT
  Sex: Male

DRUGS (12)
  1. LETAIRIS [Suspect]
     Indication: PULMONARY ARTERIAL HYPERTENSION
     Route: 048
     Dates: start: 20090814
  2. REVATIO [Concomitant]
     Indication: PULMONARY HYPERTENSION
  3. DIGOXIN [Concomitant]
     Indication: CARDIAC DISORDER
  4. SPIRONOLACTONE [Concomitant]
     Indication: HYPERTENSION
  5. BUMEX [Concomitant]
     Indication: DIURETIC THERAPY
  6. WARFARIN SODIUM [Concomitant]
     Indication: ANTICOAGULANT THERAPY
  7. TRUVADA [Concomitant]
     Indication: HIV INFECTION
  8. SELZENTRY [Concomitant]
     Indication: HIV INFECTION
  9. PREZISTA [Concomitant]
     Indication: HIV INFECTION
  10. NORVIR [Concomitant]
     Indication: HIV INFECTION
  11. ALPRAZOLAM [Concomitant]
     Indication: ANXIETY
  12. POTASSIUM CHLORIDE [Concomitant]
     Indication: SUPPLEMENTATION THERAPY

REACTIONS (3)
  - CHEST DISCOMFORT [None]
  - DYSPNOEA [None]
  - FLUID OVERLOAD [None]
